FAERS Safety Report 8805431 (Version 1)
Quarter: 2012Q4

REPORT INFORMATION
  Report Type: Spontaneous
  Country: None (occurrence: None)
  Receive Date: 20120918
  Receipt Date: 20120918
  Transmission Date: 20130627
  Serious: Yes (Other)
  Sender: FDA-Public Use
  Company Number: None

PATIENT
  Age: 26 Year
  Sex: Female
  Weight: 56.7 kg

DRUGS (2)
  1. ONDANSETRON [Suspect]
     Indication: NAUSEA
     Dates: start: 20120817, end: 20120817
  2. ONDANSETRON [Suspect]
     Indication: VOMITING
     Dates: start: 20120817, end: 20120817

REACTIONS (6)
  - Hypersensitivity [None]
  - Urticaria [None]
  - Dyspnoea [None]
  - Hyperhidrosis [None]
  - Presyncope [None]
  - Generalised erythema [None]
